FAERS Safety Report 17755321 (Version 3)
Quarter: 2021Q3

REPORT INFORMATION
  Report Type: Report from Study
  Country: GB (occurrence: GB)
  Receive Date: 20200507
  Receipt Date: 20210917
  Transmission Date: 20211014
  Serious: Yes (Hospitalization, Other)
  Sender: FDA-Public Use
  Company Number: PHHY2018GB030377

PATIENT
  Age: 63 Year
  Sex: Male
  Weight: 110 kg

DRUGS (15)
  1. HYDROCORTISONE. [Concomitant]
     Active Substance: HYDROCORTISONE
     Indication: PITUITARY TUMOUR
     Dosage: 10 MG, BID
     Route: 048
     Dates: start: 20130314
  2. FENOFIBRATE. [Concomitant]
     Active Substance: FENOFIBRATE
     Indication: HYPERCHOLESTEROLAEMIA
     Dosage: 160 MG, QD
     Route: 048
  3. TOSTRAN [Concomitant]
     Active Substance: TESTOSTERONE
     Indication: FOLLICLE STIMULATING HORMONE DEFICIENCY
  4. BISOPROLOL [Concomitant]
     Active Substance: BISOPROLOL
     Indication: PRODUCT USED FOR UNKNOWN INDICATION
     Dosage: 2.5 MG, QD
     Route: 048
     Dates: start: 20160930
  5. RAMIPRIL. [Concomitant]
     Active Substance: RAMIPRIL
     Indication: PRODUCT USED FOR UNKNOWN INDICATION
     Dosage: 2.5 MG, BID
     Route: 048
     Dates: start: 20160930
  6. LANSOPRAZOLE. [Concomitant]
     Active Substance: LANSOPRAZOLE
     Indication: PRODUCT USED FOR UNKNOWN INDICATION
     Dosage: 30 MG, QD
     Route: 048
     Dates: start: 20160930
  7. OMNITROPE [Suspect]
     Active Substance: SOMATROPIN
     Indication: GROWTH HORMONE DEFICIENCY
     Dosage: 0.1 MG (STRENGTH: 5 MG/1.5 ML SOLUTION FOR INJECTION), QD
     Route: 058
     Dates: start: 20141024
  8. HYDROCORTISONE. [Concomitant]
     Active Substance: HYDROCORTISONE
     Indication: BLOOD THYROID STIMULATING HORMONE DECREASED
  9. TOSTRAN [Concomitant]
     Active Substance: TESTOSTERONE
     Indication: LUTEINISING HORMONE DEFICIENCY
  10. ATORVASTATIN [Concomitant]
     Active Substance: ATORVASTATIN
     Indication: PRODUCT USED FOR UNKNOWN INDICATION
     Dosage: 40 MG, QD
     Route: 048
  11. FULTIUM D3 [Concomitant]
     Active Substance: CHOLECALCIFEROL
     Indication: VITAMIN D DEFICIENCY
     Dosage: 800 IU, QD
     Route: 048
     Dates: start: 20130711
  12. ASPIRIN. [Concomitant]
     Active Substance: ASPIRIN
     Indication: PRODUCT USED FOR UNKNOWN INDICATION
     Dosage: 75 MG, QD
     Route: 048
     Dates: start: 20160630
  13. LEVOTHYROXINE. [Concomitant]
     Active Substance: LEVOTHYROXINE
     Indication: BLOOD THYROID STIMULATING HORMONE DECREASED
     Dosage: 100 UG, QD
     Route: 048
     Dates: start: 20130314
  14. TOSTRAN [Concomitant]
     Active Substance: TESTOSTERONE
     Indication: PITUITARY TUMOUR
     Dosage: 60 MG, QD
     Route: 061
     Dates: start: 20130314
  15. CLOPIDOGREL [Concomitant]
     Active Substance: CLOPIDOGREL BISULFATE
     Indication: PRODUCT USED FOR UNKNOWN INDICATION
     Dosage: 75 MG, QD
     Route: 048
     Dates: start: 20160930

REACTIONS (10)
  - Pituitary tumour benign [Not Recovered/Not Resolved]
  - Urinary retention [Unknown]
  - Upper respiratory tract infection [Recovered/Resolved]
  - Gastroenteritis norovirus [Recovered/Resolved]
  - Acute myocardial infarction [Recovered/Resolved with Sequelae]
  - Visual impairment [Unknown]
  - Left ventricular dysfunction [Unknown]
  - Chest pain [Unknown]
  - Urethral stenosis [Unknown]
  - Pituitary tumour benign [Recovered/Resolved with Sequelae]

NARRATIVE: CASE EVENT DATE: 20150902
